FAERS Safety Report 4730135-5 (Version None)
Quarter: 2005Q3

REPORT INFORMATION
  Report Type: 
  Country: None (occurrence: None)
  Receive Date: 20050728
  Receipt Date: 20050715
  Transmission Date: 20060218
  Serious: Yes (Life-Threatening)
  Sender: FDA-Public Use
  Company Number: 05H-055-0300446-00

PATIENT
  Weight: 65 kg

DRUGS (20)
  1. PRECEDEX [Suspect]
     Indication: SEDATION
     Dosage: 90 ML/HR, CONTINUOUS, INTRAVENOUS  SEE IMAGE
     Route: 042
     Dates: start: 20050530, end: 20050530
  2. PRECEDEX [Suspect]
     Indication: SEDATION
     Dosage: 90 ML/HR, CONTINUOUS, INTRAVENOUS  SEE IMAGE
     Route: 042
     Dates: start: 20050531, end: 20050531
  3. PRECEDEX [Suspect]
     Indication: SEDATION
     Dosage: 90 ML/HR, CONTINUOUS, INTRAVENOUS  SEE IMAGE
     Route: 042
     Dates: start: 20050531, end: 20050531
  4. PRECEDEX [Suspect]
     Indication: SEDATION
     Dosage: 90 ML/HR, CONTINUOUS, INTRAVENOUS  SEE IMAGE
     Route: 042
     Dates: start: 20050531, end: 20050531
  5. PRECEDEX [Suspect]
     Indication: SEDATION
     Dosage: 90 ML/HR, CONTINUOUS, INTRAVENOUS  SEE IMAGE
     Route: 042
     Dates: start: 20050531, end: 20050531
  6. PRECEDEX [Suspect]
     Indication: SEDATION
     Dosage: 90 ML/HR, CONTINUOUS, INTRAVENOUS  SEE IMAGE
     Route: 042
     Dates: start: 20050531, end: 20050531
  7. PRECEDEX [Suspect]
     Indication: SEDATION
     Dosage: 90 ML/HR, CONTINUOUS, INTRAVENOUS  SEE IMAGE
     Route: 042
     Dates: start: 20050531, end: 20050531
  8. PRECEDEX [Suspect]
     Indication: SEDATION
     Dosage: 90 ML/HR, CONTINUOUS, INTRAVENOUS  SEE IMAGE
     Route: 042
     Dates: start: 20050531, end: 20050531
  9. PRECEDEX [Suspect]
     Indication: SEDATION
     Dosage: 90 ML/HR, CONTINUOUS, INTRAVENOUS  SEE IMAGE
     Route: 042
     Dates: start: 20050531, end: 20050531
  10. PRECEDEX [Suspect]
     Indication: SEDATION
     Dosage: 90 ML/HR, CONTINUOUS, INTRAVENOUS  SEE IMAGE
     Route: 042
     Dates: start: 20050531, end: 20050531
  11. PRECEDEX [Suspect]
     Indication: SEDATION
     Dosage: 90 ML/HR, CONTINUOUS, INTRAVENOUS  SEE IMAGE
     Route: 042
     Dates: start: 20050531, end: 20050531
  12. CIPROFLOXACIN [Suspect]
  13. CORDARONE [Suspect]
  14. CLINDAMYCIN HCL [Concomitant]
  15. LAXOBERON         (SODIUM PICOSULFATE) [Concomitant]
  16. DUPHALAC [Concomitant]
  17. PREDNISOLONE [Concomitant]
  18. FUROSEMIDE [Concomitant]
  19. LEVOPHED [Concomitant]
  20. TAZOCIN (PIP/TAZO) [Concomitant]

REACTIONS (1)
  - TORSADE DE POINTES [None]
